FAERS Safety Report 13927941 (Version 8)
Quarter: 2018Q2

REPORT INFORMATION
  Report Type: Spontaneous
  Country: US (occurrence: US)
  Receive Date: 20170901
  Receipt Date: 20180410
  Transmission Date: 20180711
  Serious: Yes (Other)
  Sender: FDA-Public Use
  Company Number: US-ABBVIE-17K-163-1872942-00

PATIENT
  Sex: Female

DRUGS (3)
  1. HUMIRA [Suspect]
     Active Substance: ADALIMUMAB
     Indication: ANKYLOSING SPONDYLITIS
  2. HUMIRA [Suspect]
     Active Substance: ADALIMUMAB
     Indication: PSORIATIC ARTHROPATHY
     Route: 058
     Dates: start: 2011
  3. HUMIRA [Suspect]
     Active Substance: ADALIMUMAB
     Indication: RHEUMATOID ARTHRITIS
     Route: 058

REACTIONS (22)
  - Fibromyalgia [Not Recovered/Not Resolved]
  - Drug effect decreased [Unknown]
  - Muscular weakness [Unknown]
  - Nervousness [Unknown]
  - Nephrolithiasis [Unknown]
  - Asthenia [Unknown]
  - Depressed mood [Unknown]
  - Malaise [Unknown]
  - Hot flush [Unknown]
  - Psoriatic arthropathy [Recovered/Resolved]
  - Peripheral swelling [Unknown]
  - Hypothyroidism [Unknown]
  - Pain in extremity [Unknown]
  - Parathyroid tumour [Unknown]
  - Frustration tolerance decreased [Unknown]
  - Osteoporosis [Unknown]
  - Nail disorder [Unknown]
  - Pain [Recovering/Resolving]
  - Gingivitis [Unknown]
  - Joint range of motion decreased [Unknown]
  - Fatigue [Unknown]
  - Arthralgia [Unknown]
